FAERS Safety Report 8529847-7 (Version None)
Quarter: 2012Q3

REPORT INFORMATION
  Report Type: 
  Country: None (occurrence: None)
  Receive Date: 20120710
  Receipt Date: 20120626
  Transmission Date: 20120928
  Serious: Yes (Hospitalization, Other)
  Sender: FDA-Public Use
  Company Number: DSJ-2012-05181

PATIENT
  Age: 8 Decade
  Sex: Male

DRUGS (10)
  1. CLONIDINE [Concomitant]
  2. MEDICINES (NAMES UNKNOWN) [Suspect]
     Indication: NEUROPATHY PERIPHERAL
     Dosage: UNKNOWN, PER ORAL
     Route: 048
  3. AMLODIPINE [Concomitant]
  4. BENICAR [Suspect]
     Indication: HYPERTENSION
     Dosage: 40 MG (20 MG, 2 IN 1 D), PER ORAL; 20 MG (20 MG, 1 IN 1 D), PER ORAL
     Route: 048
     Dates: start: 20120513
  5. BENICAR [Suspect]
     Indication: HYPERTENSION
     Dosage: 40 MG (20 MG, 2 IN 1 D), PER ORAL; 20 MG (20 MG, 1 IN 1 D), PER ORAL
     Route: 048
     Dates: start: 20101201, end: 20120512
  6. HYDROCHLOROTHIAZIDE [Suspect]
     Indication: OEDEMA PERIPHERAL
     Dosage: 25 MG, PER ORAL
     Route: 048
     Dates: start: 20120301
  7. INSULIN [Concomitant]
  8. CHLORTHALIDONE [Concomitant]
  9. INDAPAMIDE [Concomitant]
  10. METFORMIN HYDROCHLORIDE [Concomitant]

REACTIONS (22)
  - OEDEMA PERIPHERAL [None]
  - AMNESIA [None]
  - WOUND SECRETION [None]
  - HYPOTENSION [None]
  - COMA [None]
  - HEPATITIS [None]
  - URETHRAL DILATION PROCEDURE [None]
  - MULTI-ORGAN FAILURE [None]
  - EXTREMITY NECROSIS [None]
  - DRUG INEFFECTIVE [None]
  - BLOOD PRESSURE INCREASED [None]
  - NEUROPATHY PERIPHERAL [None]
  - SEPSIS [None]
  - MUSCULOSKELETAL STIFFNESS [None]
  - ESCHAR [None]
  - DRUG ADMINISTRATION ERROR [None]
  - HYPOGLYCAEMIA [None]
  - RENAL FAILURE ACUTE [None]
  - DIALYSIS [None]
  - CONDITION AGGRAVATED [None]
  - FATIGUE [None]
  - URINARY INCONTINENCE [None]
